FAERS Safety Report 12512531 (Version 1)
Quarter: 2016Q2

REPORT INFORMATION
  Report Type: Spontaneous
  Country: US (occurrence: None)
  Receive Date: 20160629
  Receipt Date: 20160629
  Transmission Date: 20160815
  Serious: Yes (Disabling)
  Sender: FDA-Public Use
  Company Number: None

PATIENT
  Age: 41 Year
  Sex: Female
  Weight: 92.99 kg

DRUGS (5)
  1. ALEVE [Concomitant]
     Active Substance: NAPROXEN SODIUM
  2. TYLENOL [Concomitant]
     Active Substance: ACETAMINOPHEN
  3. MIRENA [Suspect]
     Active Substance: LEVONORGESTREL
     Dates: start: 20120710, end: 20160628
  4. ADVIL [Concomitant]
     Active Substance: IBUPROFEN
  5. WELLBUTRIN [Concomitant]
     Active Substance: BUPROPION HYDROCHLORIDE

REACTIONS (17)
  - Amnesia [None]
  - Muscle spasms [None]
  - Acne [None]
  - Visual impairment [None]
  - Fatigue [None]
  - Weight fluctuation [None]
  - Depression [None]
  - Anger [None]
  - Unevaluable event [None]
  - Feeling abnormal [None]
  - Hypoaesthesia [None]
  - Headache [None]
  - Cholecystectomy [None]
  - Paraesthesia [None]
  - Mood swings [None]
  - Alopecia [None]
  - Back pain [None]
